FAERS Safety Report 8405226-8 (Version None)
Quarter: 2012Q2

REPORT INFORMATION
  Report Type: 
  Country: None (occurrence: None)
  Receive Date: 20120603
  Receipt Date: 20120524
  Transmission Date: 20120825
  Serious: Yes (Other)
  Sender: FDA-Public Use
  Company Number: JP-VERTEX PHARMACEUTICALS INC.-AE-2012-007861

PATIENT
  Age: 65 Year
  Sex: Female

DRUGS (9)
  1. NIZATIDINE [Concomitant]
     Route: 048
     Dates: start: 20120208
  2. RIBAVIRIN [Concomitant]
     Route: 048
     Dates: start: 20120425
  3. TELAVIC (TELAPREVIR) [Suspect]
     Indication: HEPATITIS C
     Route: 048
     Dates: start: 20120208, end: 20120425
  4. RIBAVIRIN [Concomitant]
     Indication: HEPATITIS C
     Route: 048
     Dates: start: 20120208
  5. DEPAS [Concomitant]
     Route: 048
     Dates: start: 20120208, end: 20120403
  6. GASMOTIN [Concomitant]
     Route: 048
     Dates: start: 20120404
  7. PEGINTERFERON ALFA-2B [Concomitant]
     Indication: HEPATITIS C
     Route: 051
     Dates: start: 20120208
  8. RIBAVIRIN [Concomitant]
     Route: 048
     Dates: end: 20120424
  9. ZETIA [Concomitant]
     Route: 048
     Dates: start: 20120208

REACTIONS (1)
  - WHITE BLOOD CELL COUNT DECREASED [None]
